FAERS Safety Report 8798146 (Version 2)
Quarter: 2012Q4

REPORT INFORMATION
  Report Type: 
  Country: JP (occurrence: JP)
  Receive Date: 20120920
  Receipt Date: 20121001
  Transmission Date: 20130627
  Serious: Yes (Hospitalization)
  Sender: FDA-Public Use
  Company Number: JP-ASTRAZENECA-2012SE70078

PATIENT
  Age: 58 Year
  Sex: Male
  Weight: 54 kg

DRUGS (9)
  1. BLOPRESS [Suspect]
     Indication: HYPERTENSION
     Route: 048
     Dates: end: 20120703
  2. SEIBULE [Suspect]
     Indication: TYPE 1 DIABETES MELLITUS
     Route: 048
     Dates: end: 20120703
  3. LIVALO [Suspect]
     Indication: HYPERLIPIDAEMIA
     Route: 048
     Dates: end: 20120703
  4. OLMETEC [Suspect]
     Indication: HYPERTENSION
     Route: 048
     Dates: end: 20120703
  5. PERMILTIN [Suspect]
     Indication: RENAL DISORDER
     Route: 048
     Dates: start: 201206, end: 20120703
  6. ANOPROLIN [Suspect]
     Indication: HYPERURICAEMIA
     Route: 048
     Dates: end: 20120703
  7. PATYUNA [Suspect]
     Indication: PRODUCT USED FOR UNKNOWN INDICATION
     Route: 048
     Dates: start: 201206, end: 20120703
  8. HUMALOG [Concomitant]
     Indication: TYPE 1 DIABETES MELLITUS
     Route: 058
  9. LANTUS SOLOSTAR [Concomitant]
     Indication: TYPE 1 DIABETES MELLITUS
     Route: 058

REACTIONS (1)
  - Drug-induced liver injury [Recovering/Resolving]
